FAERS Safety Report 8499810-3 (Version None)
Quarter: 2012Q3

REPORT INFORMATION
  Report Type: 
  Country: None (occurrence: None)
  Receive Date: 20120703
  Receipt Date: 20120703
  Transmission Date: 20120928
  Serious: Yes (Hospitalization)
  Sender: FDA-Public Use
  Company Number: None

PATIENT
  Sex: Female
  Weight: 69.7 kg

DRUGS (3)
  1. CARBOPLATIN [Suspect]
  2. HERCEPTIN [Suspect]
     Indication: BREAST CANCER
     Dosage: 6MG/KG Q3W IV
     Route: 042
     Dates: start: 20120222
  3. ABRAXANE [Suspect]

REACTIONS (11)
  - CHILLS [None]
  - HYPOTENSION [None]
  - HEADACHE [None]
  - PYREXIA [None]
  - NECK PAIN [None]
  - RASH [None]
  - PLEURISY [None]
  - DEVICE FAILURE [None]
  - CHEST PAIN [None]
  - STREPTOCOCCUS TEST POSITIVE [None]
  - CELLULITIS [None]
